FAERS Safety Report 10188338 (Version 2)
Quarter: 2014Q2

REPORT INFORMATION
  Report Type: Report from Study
  Country: US (occurrence: US)
  Receive Date: 20140522
  Receipt Date: 20140529
  Transmission Date: 20141212
  Serious: Yes (Hospitalization)
  Sender: FDA-Public Use
  Company Number: US-JNJFOC-20140511885

PATIENT
  Age: 73 Year
  Sex: Male

DRUGS (2)
  1. EVARREST [Suspect]
     Route: 062
  2. EVARREST [Suspect]
     Indication: LIVER OPERATION
     Route: 062
     Dates: start: 20140425

REACTIONS (1)
  - Post procedural bile leak [Not Recovered/Not Resolved]
